FAERS Safety Report 14256784 (Version 1)
Quarter: 2017Q4

REPORT INFORMATION
  Report Type: Report from Study
  Country: US (occurrence: US)
  Receive Date: 20171206
  Receipt Date: 20171206
  Transmission Date: 20180321
  Serious: Yes (Other)
  Sender: FDA-Public Use
  Company Number: US-SHIRE-US201731992

PATIENT
  Age: 45 Year
  Sex: Female

DRUGS (1)
  1. NATPARA (PARATHYROID HORMONE) [Suspect]
     Active Substance: PARATHYROID HORMONE
     Indication: PARATHYROID DISORDER
     Dosage: 25 ?G, 1X/DAY:QD
     Route: 058
     Dates: start: 20170301

REACTIONS (1)
  - Mass [Unknown]

NARRATIVE: CASE EVENT DATE: 20171115
